FAERS Safety Report 25323883 (Version 1)
Quarter: 2025Q2

REPORT INFORMATION
  Report Type: Spontaneous
  Country: US (occurrence: US)
  Receive Date: 20250516
  Receipt Date: 20250516
  Transmission Date: 20250717
  Serious: No
  Sender: Aarkish Pharmaceuticals
  Company Number: US-Aarkish Pharmaceuticals NJ Inc.-2176869

PATIENT

DRUGS (1)
  1. VARENICLINE TARTRATE [Suspect]
     Active Substance: VARENICLINE TARTRATE
     Indication: Smoking cessation therapy

REACTIONS (3)
  - Nausea [Unknown]
  - Insomnia [Unknown]
  - Headache [Unknown]
